FAERS Safety Report 9466651 (Version 2)
Quarter: 2013Q3

REPORT INFORMATION
  Report Type: Spontaneous
  Country: GB (occurrence: GB)
  Receive Date: 20130820
  Receipt Date: 20130918
  Transmission Date: 20140515
  Serious: Yes (Other)
  Sender: FDA-Public Use
  Company Number: GB-BAYER-2013-098235

PATIENT
  Age: 75 Year
  Sex: Male
  Weight: 102 kg

DRUGS (5)
  1. CANESTEN DUAL ACTION [Suspect]
     Indication: TINEA CRURIS
     Dosage: UNK UNK, BID DAILY
     Dates: start: 201308, end: 201308
  2. ATORVASTATIN [Concomitant]
     Dosage: 1 DF, QD
     Dates: start: 2005
  3. TAMSULOSIN [Concomitant]
     Dosage: 1 DF, UNK
     Dates: start: 2012
  4. OXYBUTYNIN [Concomitant]
     Dosage: 2.5 MG, QD
     Dates: start: 2012
  5. BUMETANIDE [Concomitant]
     Dosage: 1 MG, QD
     Dates: start: 2008

REACTIONS (11)
  - Hyperhidrosis [Not Recovered/Not Resolved]
  - Skin discolouration [Not Recovered/Not Resolved]
  - Deformity [Not Recovered/Not Resolved]
  - Skin atrophy [Not Recovered/Not Resolved]
  - Rash macular [Not Recovered/Not Resolved]
  - Pruritus [Not Recovered/Not Resolved]
  - Pain in extremity [Not Recovered/Not Resolved]
  - Application site odour [Not Recovered/Not Resolved]
  - Skin discomfort [Not Recovered/Not Resolved]
  - Application site erosion [Not Recovered/Not Resolved]
  - Application site burn [Not Recovered/Not Resolved]
